FAERS Safety Report 25691783 (Version 4)
Quarter: 2025Q4

REPORT INFORMATION
  Report Type: Spontaneous
  Country: IL (occurrence: IL)
  Receive Date: 20250818
  Receipt Date: 20251017
  Transmission Date: 20260118
  Serious: No
  Sender: PFIZER
  Company Number: IL-PFIZER INC-202500164419

PATIENT

DRUGS (1)
  1. SOMAVERT [Suspect]
     Active Substance: PEGVISOMANT
     Dosage: UNK

REACTIONS (2)
  - Device defective [Unknown]
  - Drug dose omission by device [Unknown]
